FAERS Safety Report 6108835-4 (Version None)
Quarter: 2009Q1

REPORT INFORMATION
  Report Type: 
  Country: None (occurrence: None)
  Receive Date: 20090310
  Receipt Date: 20090306
  Transmission Date: 20090719
  Serious: Yes (Death)
  Sender: FDA-Public Use
  Company Number: JP-BRISTOL-MYERS SQUIBB COMPANY-14455125

PATIENT
  Age: 64 Year
  Sex: Male

DRUGS (3)
  1. TAXOL [Suspect]
     Indication: LUNG ADENOCARCINOMA
     Dosage: IST COURSE:05AUG08 ON DAYS 1, 8 AND 15
     Route: 041
     Dates: start: 20081202, end: 20081202
  2. PARAPLATIN [Suspect]
     Indication: LUNG ADENOCARCINOMA
     Dosage: IST COURSE:05AUG08 ON DAY 1
     Route: 041
     Dates: start: 20081202, end: 20081202
  3. RADIOTHERAPY [Suspect]
     Indication: LUNG ADENOCARCINOMA
     Dosage: 1DF-39.6 GY IN TOTAL
     Dates: start: 20080725, end: 20080925

REACTIONS (1)
  - INTERSTITIAL LUNG DISEASE [None]
